FAERS Safety Report 14802375 (Version 10)
Quarter: 2024Q3

REPORT INFORMATION
  Report Type: Spontaneous
  Country: US (occurrence: US)
  Receive Date: 20180424
  Receipt Date: 20240813
  Transmission Date: 20241016
  Serious: Yes (Other)
  Sender: PURDUE
  Company Number: US-PURDUE PHARMA-USA-2018-0142318

PATIENT
  Sex: Female

DRUGS (7)
  1. OXYCONTIN [Suspect]
     Active Substance: OXYCODONE HYDROCHLORIDE
     Indication: Arthralgia
     Dosage: 450 MG, DAILY
  2. OXYCONTIN [Suspect]
     Active Substance: OXYCODONE HYDROCHLORIDE
     Indication: Tendonitis
     Dosage: 18 DF, DAILY
     Route: 048
  3. OXYCONTIN [Suspect]
     Active Substance: OXYCODONE HYDROCHLORIDE
     Indication: Nerve compression
     Dosage: 3 DF, DAILY
     Route: 048
  4. OXYCONTIN [Suspect]
     Active Substance: OXYCODONE HYDROCHLORIDE
     Indication: Wrist surgery
     Dosage: 40 MG, DAILY
     Route: 048
     Dates: start: 2014
  5. OXYCONTIN [Suspect]
     Active Substance: OXYCODONE HYDROCHLORIDE
     Dosage: UNK
     Route: 048
     Dates: start: 2014
  6. HEROIN [Suspect]
     Active Substance: DIAMORPHINE
     Indication: Drug abuse
     Dosage: UNK
     Route: 065
  7. FENTANYL CITRATE [Suspect]
     Active Substance: FENTANYL CITRATE
     Indication: Product used for unknown indication
     Dosage: UNK
     Route: 065

REACTIONS (12)
  - Overdose [Recovered/Resolved]
  - Drug use disorder [Unknown]
  - Drug dependence [Recovered/Resolved]
  - Substance abuse [Recovering/Resolving]
  - Dependence [Unknown]
  - Malaise [Unknown]
  - Depressed mood [Unknown]
  - Drug tolerance [Unknown]
  - Therapeutic product effect decreased [Unknown]
  - Pain [Unknown]
  - Emotional distress [Unknown]
  - Drug withdrawal syndrome [Unknown]

NARRATIVE: CASE EVENT DATE: 20140101
